FAERS Safety Report 22359957 (Version 1)
Quarter: 2023Q2

REPORT INFORMATION
  Report Type: Spontaneous
  Country: US (occurrence: US)
  Receive Date: 20230524
  Receipt Date: 20230524
  Transmission Date: 20230721
  Serious: No
  Sender: FDA-Public Use
  Company Number: US-BION-010962

PATIENT

DRUGS (1)
  1. MOTRIN IB [Suspect]
     Active Substance: IBUPROFEN
     Indication: Product used for unknown indication
     Dosage: STRENGTH: 200MG

REACTIONS (2)
  - Product taste abnormal [Unknown]
  - Product adhesion issue [Unknown]
